FAERS Safety Report 4706081-X (Version None)
Quarter: 2005Q2

REPORT INFORMATION
  Report Type: 
  Country: None (occurrence: None)
  Receive Date: 20050629
  Receipt Date: 20050321
  Transmission Date: 20051028
  Serious: No
  Sender: FDA-Public Use
  Company Number: 04P-163-0261029-00

PATIENT
  Age: 79 Year
  Sex: Male
  Weight: 77.1115 kg

DRUGS (6)
  1. HUMIRA [Suspect]
     Indication: RHEUMATOID ARTHRITIS
     Dosage: 40 MG, 1 IN 2 WK, SUBCUTANEOUS; 40 MG, 1 IN 1 WK, SUBCUTANEOUS
     Route: 058
     Dates: start: 20030901, end: 20040401
  2. HUMIRA [Suspect]
     Indication: RHEUMATOID ARTHRITIS
     Dosage: 40 MG, 1 IN 2 WK, SUBCUTANEOUS; 40 MG, 1 IN 1 WK, SUBCUTANEOUS
     Route: 058
     Dates: start: 20041001, end: 20041201
  3. PREDNISONE TAB [Concomitant]
  4. LEFLUNOMIDE [Concomitant]
  5. METHOTREXATE [Concomitant]
  6. BEXTRA [Concomitant]

REACTIONS (2)
  - ATYPICAL MYCOBACTERIAL INFECTION [None]
  - HERNIA [None]
